FAERS Safety Report 7915983-2 (Version None)
Quarter: 2011Q4

REPORT INFORMATION
  Report Type: 
  Country: None (occurrence: None)
  Receive Date: 20111115
  Receipt Date: 20111031
  Transmission Date: 20120403
  Serious: Yes (Other)
  Sender: FDA-Public Use
  Company Number: GB-WATSON-2011-18844

PATIENT
  Age: 74 Year
  Sex: Female
  Weight: 60 kg

DRUGS (7)
  1. D-PENICILLAMINE [Concomitant]
     Indication: PRODUCT USED FOR UNKNOWN INDICATION
     Dosage: 750 MG, DAILY
     Route: 065
  2. LANSOPRAZOLE [Concomitant]
     Indication: PRODUCT USED FOR UNKNOWN INDICATION
     Dosage: 30 MG, BID
     Route: 065
  3. ACETAMINOPHEN [Concomitant]
     Indication: PRODUCT USED FOR UNKNOWN INDICATION
     Dosage: 1 G, QID
     Route: 065
  4. GABAPENTIN [Suspect]
     Indication: RESTLESS LEGS SYNDROME
     Dosage: 100 MG, DAILY
     Route: 048
     Dates: start: 20110404, end: 20110409
  5. DIHYDROCODEINE TARTRATE [Concomitant]
     Indication: PRODUCT USED FOR UNKNOWN INDICATION
     Dosage: 60 MG, QID
     Route: 065
  6. FLUOXETINE HCL [Concomitant]
     Indication: PRODUCT USED FOR UNKNOWN INDICATION
     Dosage: 20 MG, DAILY
     Route: 065
  7. RISEDRONATE SODIUM [Concomitant]
     Indication: PRODUCT USED FOR UNKNOWN INDICATION
     Route: 065

REACTIONS (6)
  - HEART RATE IRREGULAR [None]
  - DYSPNOEA [None]
  - JOINT SWELLING [None]
  - FATIGUE [None]
  - ATRIAL FIBRILLATION [None]
  - CARDIAC FAILURE CONGESTIVE [None]
